FAERS Safety Report 18661195 (Version 1)
Quarter: 2020Q4

REPORT INFORMATION
  Report Type: Spontaneous
  Country: MO (occurrence: MO)
  Receive Date: 20201224
  Receipt Date: 20201224
  Transmission Date: 20210114
  Serious: Yes (Other)
  Sender: FDA-Public Use
  Company Number: NVSC2020MO331887

PATIENT

DRUGS (1)
  1. EXFORGE [Suspect]
     Active Substance: AMLODIPINE BESYLATE\VALSARTAN
     Indication: PRODUCT USED FOR UNKNOWN INDICATION
     Route: 065

REACTIONS (7)
  - Renal pain [Unknown]
  - Renal impairment [Unknown]
  - Muscle spasms [Unknown]
  - Palpitations [Unknown]
  - Product dose omission issue [Unknown]
  - Inflammation [Unknown]
  - Back pain [Unknown]
